FAERS Safety Report 4821209-9 (Version None)
Quarter: 2005Q4

REPORT INFORMATION
  Report Type: 
  Country: None (occurrence: None)
  Receive Date: 20051103
  Receipt Date: 20051024
  Transmission Date: 20060501
  Serious: Yes (Other)
  Sender: FDA-Public Use
  Company Number: 2005146186

PATIENT
  Age: 59 Year
  Sex: Female
  Weight: 83.0083 kg

DRUGS (1)
  1. LIPITOR [Suspect]
     Indication: BLOOD CHOLESTEROL INCREASED
     Dosage: 20 MG (20 MG, 1 IN 1 D), ORAL
     Route: 048
     Dates: start: 20030101

REACTIONS (15)
  - CATARACT [None]
  - DRY MOUTH [None]
  - DYSPNOEA [None]
  - DYSSTASIA [None]
  - EXPOSURE TO TOXIC AGENT [None]
  - INSOMNIA [None]
  - JOINT SWELLING [None]
  - MUSCLE DISORDER [None]
  - MUSCLE SPASMS [None]
  - OEDEMA PERIPHERAL [None]
  - PAIN IN EXTREMITY [None]
  - SHOULDER PAIN [None]
  - URINARY INCONTINENCE [None]
  - WEIGHT DECREASED [None]
  - WEIGHT INCREASED [None]
